FAERS Safety Report 10424486 (Version 1)
Quarter: 2014Q3

REPORT INFORMATION
  Report Type: Spontaneous
  Country: US (occurrence: US)
  Receive Date: 20140902
  Receipt Date: 20140902
  Transmission Date: 20150326
  Serious: Yes (Other)
  Sender: FDA-Public Use
  Company Number: US-PFIZER INC-2014241500

PATIENT
  Age: 53 Year
  Sex: Female
  Weight: 79.37 kg

DRUGS (3)
  1. PERCOCET [Concomitant]
     Active Substance: ACETAMINOPHEN\OXYCODONE HYDROCHLORIDE
     Dosage: ACETAMINOPHEN 7.5/ OXYCODONE 325
     Dates: start: 2005
  2. SOMA [Concomitant]
     Active Substance: CARISOPRODOL
     Dosage: 375 MG, AS NEEDED
     Dates: start: 2005
  3. LYRICA [Suspect]
     Active Substance: PREGABALIN
     Indication: FIBROMYALGIA
     Dosage: 50 MG, 3X/DAY
     Route: 048
     Dates: start: 2000

REACTIONS (3)
  - Osteoporosis [Not Recovered/Not Resolved]
  - Nervous system disorder [Unknown]
  - Weight decreased [Unknown]

NARRATIVE: CASE EVENT DATE: 2010
